FAERS Safety Report 8891804 (Version 1)
Quarter: 2012Q4

REPORT INFORMATION
  Report Type: Spontaneous
  Country: US (occurrence: None)
  Receive Date: 20121108
  Receipt Date: 20121108
  Transmission Date: 20130627
  Serious: No
  Sender: FDA-Public Use
  Company Number: None

PATIENT
  Age: 39 Year
  Sex: Female

DRUGS (1)
  1. METHYLPREDNISOLONE [Suspect]
     Indication: MULTIPLE SCLEROSIS EXACERBATION
     Dosage: 50 mL/hr IV
     Route: 042
     Dates: start: 20121104

REACTIONS (4)
  - Headache [None]
  - Arthralgia [None]
  - Condition aggravated [None]
  - Arthralgia [None]
